FAERS Safety Report 5138780-2 (Version None)
Quarter: 2006Q4

REPORT INFORMATION
  Report Type: 
  Country: None (occurrence: None)
  Receive Date: 20061024
  Receipt Date: 20061018
  Transmission Date: 20070319
  Serious: Yes (Death, Hospitalization)
  Sender: FDA-Public Use
  Company Number: 148867USA

PATIENT
  Age: 22 Year
  Sex: Male

DRUGS (2)
  1. NOREPINEPHRINE BITARTRATE 1 MG BASE/ML (NOREPINEPHRINE) [Suspect]
  2. DOPAMINE HCL IN 5% DEXTROSE [Suspect]
     Dosage: 15 MICROG/KG, INTRAVENOUS DRIP
     Route: 041

REACTIONS (5)
  - ATRIAL FIBRILLATION [None]
  - CONDITION AGGRAVATED [None]
  - CONVULSION [None]
  - EXTRASYSTOLES [None]
  - SUDDEN DEATH [None]
